FAERS Safety Report 23343782 (Version 1)
Quarter: 2023Q4

REPORT INFORMATION
  Report Type: Spontaneous
  Country: US (occurrence: US)
  Receive Date: 20231227
  Receipt Date: 20231227
  Transmission Date: 20240110
  Serious: No
  Sender: FDA-Public Use
  Company Number: US-PFIZER INC-PV202300204422

PATIENT
  Age: 46 Year
  Sex: Male

DRUGS (1)
  1. PAXLOVID [Suspect]
     Active Substance: NIRMATRELVIR\RITONAVIR
     Indication: COVID-19 prophylaxis
     Dosage: 300MG/100MG DOSE PACK TWICE A DAY MORNING AND NIGHT WITH WATER
     Dates: start: 20231211

REACTIONS (4)
  - Hypertension [Unknown]
  - Dysphagia [Unknown]
  - Dyspepsia [Unknown]
  - Off label use [Unknown]
